FAERS Safety Report 9274875 (Version 1)
Quarter: 2013Q2

REPORT INFORMATION
  Report Type: Spontaneous
  Country: JP (occurrence: None)
  Receive Date: 20130429
  Receipt Date: 20130429
  Transmission Date: 20140414
  Serious: Yes (Other)
  Sender: FDA-Public Use
  Company Number: ABR_00908_2013

PATIENT
  Sex: Female
  Weight: 32 kg

DRUGS (3)
  1. ERYTHROCIN [Suspect]
     Indication: PRODUCT USED FOR UNKNOWN INDICATION
     Route: 048
     Dates: start: 201208, end: 201304
  2. BIOLOGICAL PREPARATIONS [Concomitant]
  3. CIMETIDINE [Concomitant]

REACTIONS (1)
  - Deafness [None]
